FAERS Safety Report 8374580-8 (Version None)
Quarter: 2012Q2

REPORT INFORMATION
  Report Type: 
  Country: None (occurrence: None)
  Receive Date: 20120521
  Receipt Date: 20120508
  Transmission Date: 20120825
  Serious: Yes (Other)
  Sender: FDA-Public Use
  Company Number: CA-JNJFOC-20120509788

PATIENT
  Sex: Male
  Weight: 54.89 kg

DRUGS (2)
  1. REMICADE [Suspect]
     Indication: PSORIATIC ARTHROPATHY
     Route: 042
  2. REMICADE [Suspect]
     Route: 042

REACTIONS (2)
  - GENERAL PHYSICAL HEALTH DETERIORATION [None]
  - OSTEITIS DEFORMANS [None]
